FAERS Safety Report 6518989-3 (Version None)
Quarter: 2009Q4

REPORT INFORMATION
  Report Type: 
  Country: None (occurrence: None)
  Receive Date: 20091228
  Receipt Date: 20091216
  Transmission Date: 20100525
  Serious: Yes (Hospitalization, Other)
  Sender: FDA-Public Use
  Company Number: US-WYE-H12175809

PATIENT
  Sex: Female

DRUGS (7)
  1. PREMARIN [Suspect]
     Indication: HORMONE REPLACEMENT THERAPY
     Dosage: UNKNOWN
     Route: 065
  2. PREMARIN [Suspect]
     Indication: VULVOVAGINAL DRYNESS
  3. PREMARIN [Suspect]
     Indication: PROPHYLAXIS
  4. ESTROGENS ESTERIFIED/METHYLTESTOSTERONE [Concomitant]
     Dosage: UNKNOWN
     Route: 065
  5. HYDROCHLOROTHIAZIDE [Concomitant]
     Dosage: 25MG/6.26MG TABLETS
     Route: 065
  6. ESTRADIOL [Suspect]
     Dosage: UNKNOWN
     Route: 065
  7. BISOPROLOL [Concomitant]

REACTIONS (1)
  - HEART VALVE INCOMPETENCE [None]
